FAERS Safety Report 15773109 (Version 1)
Quarter: 2018Q4

REPORT INFORMATION
  Report Type: Spontaneous
  Country: US (occurrence: US)
  Receive Date: 20181228
  Receipt Date: 20181228
  Transmission Date: 20190205
  Serious: No
  Sender: FDA-Public Use
  Company Number: US-SA-2018SA396329

PATIENT
  Sex: Female

DRUGS (7)
  1. AMLODIPINE BENAZEPRIL [Concomitant]
     Active Substance: AMLODIPINE BESYLATE\BENAZEPRIL HYDROCHLORIDE
  2. ARAVA [Suspect]
     Active Substance: LEFLUNOMIDE
     Indication: ARTHRITIS
  3. MYCOPHENOLATE [Concomitant]
     Active Substance: MYCOPHENOLIC ACID
  4. CODEINE [Suspect]
     Active Substance: CODEINE
     Indication: TOOTHACHE
     Dosage: UNK
     Dates: start: 1989
  5. METHOTREXATE. [Suspect]
     Active Substance: METHOTREXATE
     Indication: ARTHRITIS
     Dosage: UNK
  6. CARVEDILOL. [Concomitant]
     Active Substance: CARVEDILOL
  7. PREDNISONE. [Concomitant]
     Active Substance: PREDNISONE

REACTIONS (7)
  - Drug hypersensitivity [Unknown]
  - Stomatitis [Unknown]
  - Vomiting [Unknown]
  - Oral mucosal blistering [Unknown]
  - Abdominal discomfort [Unknown]
  - Lip blister [Unknown]
  - White blood cell count decreased [Unknown]
